FAERS Safety Report 8408198-5 (Version None)
Quarter: 2012Q2

REPORT INFORMATION
  Report Type: 
  Country: None (occurrence: None)
  Receive Date: 20120529
  Receipt Date: 20051213
  Transmission Date: 20120825
  Serious: Yes (Other)
  Sender: FDA-Public Use
  Company Number: 02100-JPN-05-0606

PATIENT
  Age: 90 Year
  Sex: Female

DRUGS (3)
  1. SOL MEDROL (METHYLPREDNISOLONE SODIUM SUCCINATE) [Concomitant]
  2. PLETAL [Suspect]
     Dosage: 100 MG, BID, ORAL
     Route: 048
     Dates: start: 20051130
  3. VICCILLIN (AMPICILLIN) INJECTIOA [Concomitant]

REACTIONS (6)
  - OESOPHAGITIS [None]
  - SHOCK [None]
  - LIVER DISORDER [None]
  - PNEUMONIA ASPIRATION [None]
  - HAEMATEMESIS [None]
  - PANCREATIC MASS [None]
